FAERS Safety Report 8746567 (Version 2)
Quarter: 2012Q4

REPORT INFORMATION
  Report Type: 
  Country: NL (occurrence: NL)
  Receive Date: 20120827
  Receipt Date: 20121003
  Transmission Date: 20130627
  Serious: Yes (Hospitalization)
  Sender: FDA-Public Use
  Company Number: NL-PFIZER INC-2012204571

PATIENT
  Age: 46 Year
  Sex: Female
  Weight: 43 kg

DRUGS (5)
  1. GENOTROPIN [Suspect]
     Indication: HYPOPITUITARISM
     Dosage: 0.5 mg, 7/wk
     Route: 058
     Dates: start: 20060316
  2. DESMOPRESSIN [Concomitant]
     Indication: BLOOD ANTIDIURETIC HORMONE DECREASED
     Dosage: UNK
     Dates: start: 19660114
  3. CALCICHEW [Concomitant]
     Indication: HYPOCALCAEMIA
     Dosage: UNK
     Dates: start: 20040303
  4. THYRAX [Concomitant]
     Indication: BLOOD THYROID STIMULATING HORMONE DECREASED
     Dosage: UNK
     Dates: start: 20050420
  5. THYRAX [Concomitant]
     Indication: PRIMARY HYPOTHYROIDISM

REACTIONS (1)
  - Allergy to arthropod sting [Unknown]
